FAERS Safety Report 10158373 (Version 2)
Quarter: 2014Q2

REPORT INFORMATION
  Report Type: Spontaneous
  Country: US (occurrence: US)
  Receive Date: 20140507
  Receipt Date: 20140530
  Transmission Date: 20141212
  Serious: No
  Sender: FDA-Public Use
  Company Number: US-009507513-1404USA014302

PATIENT
  Age: 30 Year
  Sex: Female
  Weight: 65.76 kg

DRUGS (6)
  1. OXYTROL FOR WOMEN [Suspect]
     Indication: POLLAKIURIA
     Dosage: UNK, UNKNOWN
     Route: 062
     Dates: start: 20140303
  2. AZATHIOPRINE [Concomitant]
     Indication: OCULAR MYASTHENIA
     Dosage: UNK, UNKNOWN
  3. MAXALT [Concomitant]
     Indication: MIGRAINE
     Dosage: UNK, UNKNOWN
  4. BUTALBITAL [Concomitant]
     Indication: MIGRAINE
     Dosage: UNK, UNKNOWN
  5. PANTOPRAZOLE [Concomitant]
     Indication: DYSPEPSIA
     Dosage: UNK, UNKNOWN
  6. ASPIRIN [Concomitant]
     Indication: PRODUCT USED FOR UNKNOWN INDICATION
     Dosage: UNK, UNKNOWN

REACTIONS (1)
  - Contusion [Not Recovered/Not Resolved]
